FAERS Safety Report 21664656 (Version 2)
Quarter: 2022Q4

REPORT INFORMATION
  Report Type: Spontaneous
  Country: US (occurrence: US)
  Receive Date: 20221130
  Receipt Date: 20221206
  Transmission Date: 20230113
  Serious: No
  Sender: FDA-Public Use
  Company Number: US-BAYER-2022A160793

PATIENT
  Age: 76 Year
  Sex: Male

DRUGS (1)
  1. MIRALAX [Suspect]
     Active Substance: POLYETHYLENE GLYCOL 3350
     Dosage: 2 DOSE A DAY
     Route: 048

REACTIONS (2)
  - Oedema peripheral [Recovering/Resolving]
  - Inappropriate schedule of product administration [Recovered/Resolved]
